FAERS Safety Report 8821036 (Version 1)
Quarter: 2012Q4

REPORT INFORMATION
  Report Type: 
  Country: US (occurrence: US)
  Receive Date: 20121002
  Receipt Date: 20121002
  Transmission Date: 20130627
  Serious: Yes (Death)
  Sender: FDA-Public Use
  Company Number: US-ROCHE-1130063

PATIENT
  Sex: Female

DRUGS (4)
  1. RITUXAN [Suspect]
     Indication: MULTIPLE MYELOMA
     Dosage: dose administered: 600
     Route: 065
     Dates: start: 20010706
  2. SOLU-MEDROL [Concomitant]
     Route: 065
  3. BENADRYL [Concomitant]
     Route: 065
  4. TYLENOL [Concomitant]
     Route: 048

REACTIONS (5)
  - Death [Fatal]
  - Pain [Unknown]
  - Rash [Unknown]
  - Cough [Unknown]
  - Dyspnoea [Unknown]
